FAERS Safety Report 5224380-2 (Version None)
Quarter: 2007Q1

REPORT INFORMATION
  Report Type: 
  Country: None (occurrence: None)
  Receive Date: 20070130
  Receipt Date: 20070122
  Transmission Date: 20070707
  Serious: Yes (Other)
  Sender: FDA-Public Use
  Company Number: US-PFIZER INC-2005092493

PATIENT
  Sex: Male

DRUGS (3)
  1. CELEBREX [Suspect]
     Indication: RHEUMATOID ARTHRITIS
  2. ETODOLAC [Suspect]
     Indication: RHEUMATOID ARTHRITIS
     Route: 065
  3. TYLENOL [Suspect]
     Indication: RHEUMATOID ARTHRITIS
     Route: 065

REACTIONS (5)
  - ARTHRITIS [None]
  - BASAL CELL CARCINOMA [None]
  - NAIL OPERATION [None]
  - PAIN [None]
  - SLEEP DISORDER [None]
